FAERS Safety Report 19112414 (Version 1)
Quarter: 2021Q2

REPORT INFORMATION
  Report Type: Spontaneous
  Country: CA (occurrence: CA)
  Receive Date: 20210408
  Receipt Date: 20210408
  Transmission Date: 20210717
  Serious: Yes (Death, Other)
  Sender: FDA-Public Use
  Company Number: CA-GLAXOSMITHKLINE-CACH2021AMR017862

PATIENT
  Age: 85 Year
  Sex: Female
  Weight: 43 kg

DRUGS (2)
  1. VITAMIN C [Concomitant]
     Active Substance: ASCORBIC ACID
     Indication: PRODUCT USED FOR UNKNOWN INDICATION
     Dosage: UNK
  2. ADVIL [Suspect]
     Active Substance: IBUPROFEN
     Indication: PRODUCT USED FOR UNKNOWN INDICATION
     Dosage: 200 MG, 2 EVERY 1 DAYS

REACTIONS (5)
  - Thrombosis [Fatal]
  - Abdominal pain upper [Fatal]
  - Dyspepsia [Fatal]
  - Lower gastrointestinal haemorrhage [Fatal]
  - Rectal haemorrhage [Fatal]
